FAERS Safety Report 22329078 (Version 2)
Quarter: 2023Q2

REPORT INFORMATION
  Report Type: Report from Study
  Country: CA (occurrence: CA)
  Receive Date: 20230517
  Receipt Date: 20230629
  Transmission Date: 20230721
  Serious: Yes (Hospitalization)
  Sender: FDA-Public Use
  Company Number: CA-ABBVIE-4769346

PATIENT
  Age: 36 Year
  Sex: Male

DRUGS (1)
  1. HUMIRA [Suspect]
     Active Substance: ADALIMUMAB
     Indication: Crohn^s disease
     Route: 058
     Dates: start: 20141127, end: 20230601

REACTIONS (6)
  - Small intestinal obstruction [Unknown]
  - Crohn^s disease [Recovered/Resolved]
  - Vomiting [Unknown]
  - Adhesion [Unknown]
  - Abdominal pain [Unknown]
  - Small intestinal stenosis [Unknown]

NARRATIVE: CASE EVENT DATE: 20230511
